FAERS Safety Report 8834837 (Version 2)
Quarter: 2012Q4

REPORT INFORMATION
  Report Type: 
  Country: JP (occurrence: JP)
  Receive Date: 20121010
  Receipt Date: 20121031
  Transmission Date: 20130627
  Serious: Yes (Life-Threatening, Hospitalization)
  Sender: FDA-Public Use
  Company Number: JP-GLAXOSMITHKLINE-B0836387A

PATIENT
  Age: 17 Year
  Sex: Female

DRUGS (4)
  1. LAMICTAL [Suspect]
     Indication: EPILEPSY
     Dosage: 50MG Per day
     Route: 048
     Dates: start: 20120906, end: 20120910
  2. PHENOBAL [Suspect]
     Indication: EPILEPSY
     Dosage: 120MG Per day
     Route: 048
     Dates: start: 20071031, end: 201209
  3. PHENOBAL [Suspect]
     Indication: EPILEPSY
     Route: 048
     Dates: start: 201209, end: 201209
  4. PHENOBAL [Suspect]
     Indication: EPILEPSY
     Dosage: 90MG Per day
     Route: 048
     Dates: start: 201209

REACTIONS (7)
  - Overdose [Recovered/Resolved]
  - Suicide attempt [Recovered/Resolved]
  - Loss of consciousness [Recovering/Resolving]
  - Breath sounds abnormal [Unknown]
  - Mania [Unknown]
  - C-reactive protein increased [Unknown]
  - Drug level increased [Unknown]
